FAERS Safety Report 7221504-2 (Version None)
Quarter: 2011Q1

REPORT INFORMATION
  Report Type: 
  Country: None (occurrence: None)
  Receive Date: 20110112
  Receipt Date: 20110104
  Transmission Date: 20110831
  Serious: Yes (Hospitalization, Other)
  Sender: FDA-Public Use
  Company Number: PHHY2011GR00605

PATIENT
  Age: 37 Year
  Sex: Female

DRUGS (3)
  1. EXJADE [Suspect]
     Dosage: 44 MG/KG, UNK
     Dates: start: 20080901, end: 20101101
  2. DESFERAL [Suspect]
     Indication: THALASSAEMIA
     Dosage: UNK
     Dates: start: 20080901, end: 20101101
  3. EXJADE [Suspect]
     Indication: THALASSAEMIA
     Dosage: 35 MG/KG, UNK
     Dates: start: 20080901, end: 20101101

REACTIONS (5)
  - POLYNEUROPATHY [None]
  - QUADRIPLEGIA [None]
  - HYPOKALAEMIA [None]
  - WEIGHT DECREASED [None]
  - HYPONATRAEMIA [None]
